FAERS Safety Report 15483569 (Version 1)
Quarter: 2018Q4

REPORT INFORMATION
  Report Type: Spontaneous
  Country: US (occurrence: US)
  Receive Date: 20181010
  Receipt Date: 20181010
  Transmission Date: 20190205
  Serious: No
  Sender: FDA-Public Use
  Company Number: US-ROMARKLABS-2018-US-000023

PATIENT
  Age: 63 Year
  Sex: Female

DRUGS (3)
  1. UNSPECIFIED PROBIOTICS [Concomitant]
     Indication: GASTROINTESTINAL BACTERIAL OVERGROWTH
     Route: 048
     Dates: start: 201803
  2. ATENOLOL. [Concomitant]
     Active Substance: ATENOLOL
     Dosage: 25 MG ONCE DAILY
     Route: 048
     Dates: start: 20180227
  3. ALINIA [Suspect]
     Active Substance: NITAZOXANIDE
     Indication: GASTROINTESTINAL BACTERIAL OVERGROWTH
     Dosage: 1 TABLET TWICE DAILY
     Route: 048
     Dates: start: 20180312

REACTIONS (2)
  - Abdominal pain upper [Not Recovered/Not Resolved]
  - Frequent bowel movements [Not Recovered/Not Resolved]

NARRATIVE: CASE EVENT DATE: 20180313
